FAERS Safety Report 12157741 (Version 1)
Quarter: 2016Q1

REPORT INFORMATION
  Report Type: Spontaneous
  Country: US (occurrence: US)
  Receive Date: 20160308
  Receipt Date: 20160308
  Transmission Date: 20160526
  Serious: No
  Sender: FDA-Public Use
  Company Number: US-JNJFOC-20150101506

PATIENT
  Age: 77 Year
  Sex: Female

DRUGS (8)
  1. LASIX [Concomitant]
     Active Substance: FUROSEMIDE
  2. LOSARTAN. [Concomitant]
     Active Substance: LOSARTAN
  3. OXYBUTYNIN [Concomitant]
     Active Substance: OXYBUTYNIN
  4. FENOFIBRATE. [Concomitant]
     Active Substance: FENOFIBRATE
  5. CRESTOR [Concomitant]
     Active Substance: ROSUVASTATIN CALCIUM
  6. IMBRUVICA [Suspect]
     Active Substance: IBRUTINIB
     Indication: CHRONIC LYMPHOCYTIC LEUKAEMIA
     Route: 065
     Dates: start: 20141006
  7. ASPIRIN. [Concomitant]
     Active Substance: ASPIRIN
  8. CARVEDIOL [Concomitant]
     Active Substance: CARVEDILOL

REACTIONS (2)
  - Incorrect dose administered [Not Recovered/Not Resolved]
  - Dyspepsia [Not Recovered/Not Resolved]

NARRATIVE: CASE EVENT DATE: 201410
